FAERS Safety Report 20560981 (Version 1)
Quarter: 2022Q1

REPORT INFORMATION
  Report Type: Other
  Country: CA (occurrence: None)
  Receive Date: 20220307
  Receipt Date: 20220307
  Transmission Date: 20220423
  Serious: Yes (Hospitalization, Other)
  Sender: FDA-Public Use
  Company Number: CA-ROCHE-1289997

PATIENT
  Sex: Female
  Weight: 40 kg

DRUGS (8)
  1. RITUXAN [Suspect]
     Active Substance: RITUXIMAB
     Indication: Pemphigus
     Route: 042
     Dates: start: 20100618
  2. RITUXAN [Suspect]
     Active Substance: RITUXIMAB
     Route: 042
     Dates: start: 20131011
  3. IMURAN [Suspect]
     Active Substance: AZATHIOPRINE
     Indication: Pemphigus
     Route: 065
  4. PREDNISONE [Suspect]
     Active Substance: PREDNISONE
     Indication: Pemphigus
     Route: 065
  5. ACETAMINOPHEN [Concomitant]
     Active Substance: ACETAMINOPHEN
     Indication: Premedication
     Route: 048
     Dates: start: 20100618
  6. DIPHENHYDRAMINE HYDROCHLORIDE [Concomitant]
     Active Substance: DIPHENHYDRAMINE HYDROCHLORIDE
     Indication: Premedication
     Route: 048
     Dates: start: 20100618
  7. METHYLPREDNISOLONE [Concomitant]
     Active Substance: METHYLPREDNISOLONE
     Indication: Premedication
     Route: 042
     Dates: start: 20100618
  8. XALATAN [Concomitant]
     Active Substance: LATANOPROST

REACTIONS (11)
  - Hypotension [Unknown]
  - Pancytopenia [Unknown]
  - Localised infection [Unknown]
  - Weight decreased [Unknown]
  - Pemphigus [Not Recovered/Not Resolved]
  - Off label use [Unknown]
  - Mucosal erosion [Not Recovered/Not Resolved]
  - Product use in unapproved indication [Unknown]
  - Pemphigus [Not Recovered/Not Resolved]
  - Blood pressure diastolic abnormal [Unknown]
  - Infusion related reaction [Recovered/Resolved]

NARRATIVE: CASE EVENT DATE: 20130101
